FAERS Safety Report 6686662-7 (Version None)
Quarter: 2010Q2

REPORT INFORMATION
  Report Type: 
  Country: None (occurrence: None)
  Receive Date: 20100419
  Receipt Date: 20100408
  Transmission Date: 20101027
  Serious: Yes (Hospitalization)
  Sender: FDA-Public Use
  Company Number: FR-B.I. PHARMACEUTICALS,INC./RIDGEFIELD-2010-FF-00310FF

PATIENT
  Age: 11 Year
  Sex: Male

DRUGS (4)
  1. CLONIDINE HCL [Suspect]
     Route: 048
     Dates: start: 20030101
  2. TEGRETOL [Suspect]
     Dosage: 600 MG
     Route: 048
     Dates: start: 20100115, end: 20100312
  3. ATARAX [Suspect]
     Route: 048
     Dates: start: 20040101
  4. MINISINTROM [Suspect]
     Route: 048
     Dates: start: 20030101

REACTIONS (12)
  - ANKLE FRACTURE [None]
  - CELL DEATH [None]
  - CONVULSION [None]
  - DIARRHOEA [None]
  - DISSEMINATED INTRAVASCULAR COAGULATION [None]
  - ENCEPHALITIS [None]
  - HYPERTHERMIA MALIGNANT [None]
  - HYPOGLYCAEMIA [None]
  - INTERNATIONAL NORMALISED RATIO INCREASED [None]
  - PYREXIA [None]
  - RENAL FAILURE [None]
  - RHABDOMYOLYSIS [None]
